FAERS Safety Report 18108910 (Version 2)
Quarter: 2020Q4

REPORT INFORMATION
  Report Type: Spontaneous
  Country: US (occurrence: US)
  Receive Date: 20200804
  Receipt Date: 20201215
  Transmission Date: 20210113
  Serious: No
  Sender: FDA-Public Use
  Company Number: US-PFIZER INC-2020290877

PATIENT
  Age: 53 Year
  Sex: Male

DRUGS (4)
  1. PREGABALIN. [Suspect]
     Active Substance: PREGABALIN
     Indication: CHEST PAIN
     Dosage: UNK
  2. DULOXETINE. [Concomitant]
     Active Substance: DULOXETINE
     Dosage: UNK
  3. LYRICA [Suspect]
     Active Substance: PREGABALIN
     Indication: AUTOIMMUNE DISORDER
  4. LYRICA [Suspect]
     Active Substance: PREGABALIN
     Indication: CHEST PAIN
     Dosage: UNK

REACTIONS (4)
  - Off label use [Unknown]
  - Intervertebral disc degeneration [Unknown]
  - Disturbance in attention [Unknown]
  - Back pain [Unknown]
